FAERS Safety Report 4650827-6 (Version None)
Quarter: 2005Q2

REPORT INFORMATION
  Report Type: 
  Country: None (occurrence: None)
  Receive Date: 20050503
  Receipt Date: 20050421
  Transmission Date: 20051028
  Serious: Yes (Other)
  Sender: FDA-Public Use
  Company Number: PHEH2005US04688

PATIENT
  Age: 74 Year
  Sex: Female

DRUGS (3)
  1. PAMIDRONATE DISODIUM [Suspect]
     Indication: METASTASES TO BONE
     Dates: start: 19980216
  2. INTERFERON [Concomitant]
  3. THALIDOMIDE [Concomitant]

REACTIONS (3)
  - DENTAL TREATMENT [None]
  - IMPAIRED HEALING [None]
  - PAIN IN JAW [None]
